FAERS Safety Report 14256341 (Version 2)
Quarter: 2017Q4

REPORT INFORMATION
  Report Type: Report from Study
  Country: AR (occurrence: AR)
  Receive Date: 20171206
  Receipt Date: 20171214
  Transmission Date: 20180321
  Serious: Yes (Other)
  Sender: FDA-Public Use
  Company Number: AR-BAYER-2017-232115

PATIENT
  Age: 24 Year
  Sex: Female

DRUGS (6)
  1. AMOXI-CLAVULANICO [Suspect]
     Active Substance: AMOXICILLIN\CLAVULANIC ACID
  2. PARA-AMINOSALICYLIC ACID [Suspect]
     Active Substance: AMINOSALICYLIC ACID
  3. MEROPENEM. [Suspect]
     Active Substance: MEROPENEM
  4. LINEZOLID. [Suspect]
     Active Substance: LINEZOLID
  5. CAPREOMYCIN [Suspect]
     Active Substance: CAPREOMYCIN
  6. MOXIFLOXACIN. [Suspect]
     Active Substance: MOXIFLOXACIN
     Dosage: UNK

REACTIONS (3)
  - Product use in unapproved indication [None]
  - Off label use [None]
  - Gastrointestinal disorder [None]
